FAERS Safety Report 4959052-2 (Version None)
Quarter: 2006Q1

REPORT INFORMATION
  Report Type: 
  Country: None (occurrence: None)
  Receive Date: 20060331
  Receipt Date: 20060323
  Transmission Date: 20060701
  Serious: Yes (Hospitalization, Other)
  Sender: FDA-Public Use
  Company Number: ES-JNJFOC-20060200948

PATIENT
  Age: 63 Year
  Sex: Female

DRUGS (2)
  1. REMICADE [Suspect]
     Indication: ANKYLOSING SPONDYLITIS
     Route: 042
  2. METHOTREXATE [Concomitant]
     Route: 065

REACTIONS (1)
  - ACUTE MYELOID LEUKAEMIA [None]
